FAERS Safety Report 11660363 (Version 4)
Quarter: 2015Q4

REPORT INFORMATION
  Report Type: Spontaneous
  Country: US (occurrence: US)
  Receive Date: 20151026
  Receipt Date: 20151229
  Transmission Date: 20160304
  Serious: Yes (Hospitalization)
  Sender: FDA-Public Use
  Company Number: US-BAXTER-2015BAX056000

PATIENT
  Age: 48 Year
  Sex: Male

DRUGS (4)
  1. DIANEAL LOW CALCIUM PERITONEAL DIALYSIS SOLUTION WITH DEXTROSE [Suspect]
     Active Substance: CALCIUM CHLORIDE\DEXTROSE\MAGNESIUM CHLORIDE\SODIUM CHLORIDE\SODIUM LACTATE
     Indication: PERITONEAL DIALYSIS
     Route: 033
  2. DIANEAL LOW CALCIUM PERITONEAL DIALYSIS SOLUTION WITH DEXTROSE [Suspect]
     Active Substance: CALCIUM CHLORIDE\DEXTROSE\MAGNESIUM CHLORIDE\SODIUM CHLORIDE\SODIUM LACTATE
     Indication: PERITONEAL DIALYSIS
     Route: 033
  3. DIANEAL LOW CALCIUM PERITONEAL DIALYSIS SOLUTION WITH DEXTROSE [Suspect]
     Active Substance: CALCIUM CHLORIDE\DEXTROSE\MAGNESIUM CHLORIDE\SODIUM CHLORIDE\SODIUM LACTATE
     Indication: PERITONEAL DIALYSIS
     Route: 033
  4. EXTRANEAL [Suspect]
     Active Substance: CALCIUM CHLORIDE\ICODEXTRIN\MAGNESIUM CHLORIDE\SODIUM CHLORIDE\SODIUM LACTATE
     Indication: PERITONEAL DIALYSIS
     Route: 033

REACTIONS (6)
  - Sepsis [Recovering/Resolving]
  - Catheter site related reaction [Recovering/Resolving]
  - Arteriovenous fistula site infection [Recovered/Resolved]
  - Abscess [Recovered/Resolved]
  - Abscess rupture [Recovering/Resolving]
  - Infection [Recovering/Resolving]

NARRATIVE: CASE EVENT DATE: 201510
